FAERS Safety Report 23982094 (Version 1)
Quarter: 2024Q2

REPORT INFORMATION
  Report Type: Report from Study
  Country: US (occurrence: US)
  Receive Date: 20240617
  Receipt Date: 20240617
  Transmission Date: 20240716
  Serious: Yes (Hospitalization)
  Sender: FDA-Public Use
  Company Number: US-OTSUKA-2024_003986

PATIENT
  Sex: Male

DRUGS (13)
  1. TOLVAPTAN [Suspect]
     Active Substance: TOLVAPTAN
     Indication: Congenital cystic kidney disease
     Dosage: 90 MG, QD (UPON WAKING)
     Route: 048
     Dates: start: 20200714
  2. TOLVAPTAN [Suspect]
     Active Substance: TOLVAPTAN
     Dosage: 30 MG, (8 H LATER)
     Route: 048
     Dates: start: 20200714
  3. AMLODIPINE [Concomitant]
     Active Substance: AMLODIPINE BESYLATE
     Indication: Product used for unknown indication
     Dosage: 10 MG
     Route: 065
  4. ANDROGEL [Concomitant]
     Active Substance: TESTOSTERONE
     Indication: Product used for unknown indication
     Dosage: UNK (4MG/24HR)
     Route: 065
  5. ATORVASTATIN [Concomitant]
     Active Substance: ATORVASTATIN
     Indication: Product used for unknown indication
     Dosage: UNK
     Route: 065
  6. CABERGOLINE [Concomitant]
     Active Substance: CABERGOLINE
     Indication: Product used for unknown indication
     Dosage: 0.5 MG
     Route: 065
  7. CLOMIPHENE [CLOMIFENE CITRATE] [Concomitant]
     Indication: Product used for unknown indication
     Dosage: 50 MG
     Route: 065
  8. LEVOTHYROXINE [Concomitant]
     Active Substance: LEVOTHYROXINE\LEVOTHYROXINE SODIUM
     Indication: Product used for unknown indication
     Dosage: 50 ?G
     Route: 065
  9. LOSARTAN POTASSIUM [Concomitant]
     Active Substance: LOSARTAN POTASSIUM
     Indication: Product used for unknown indication
     Dosage: 100 MG
     Route: 065
  10. RANITIDINE [Concomitant]
     Active Substance: RANITIDINE
     Indication: Product used for unknown indication
     Dosage: 150 MG
     Route: 065
  11. TAMSULOSIN [Concomitant]
     Active Substance: TAMSULOSIN
     Indication: Product used for unknown indication
     Dosage: 0.4 MG
     Route: 065
  12. ANDRODERM [Concomitant]
     Active Substance: TESTOSTERONE
     Indication: Product used for unknown indication
     Dosage: UNK (4MG/24HR)
     Route: 065
  13. QSYMIA [Concomitant]
     Active Substance: PHENTERMINE HYDROCHLORIDE\TOPIRAMATE
     Indication: Product used for unknown indication
     Dosage: UNK (7.5-46MG)
     Route: 065

REACTIONS (3)
  - Surgery [Not Recovered/Not Resolved]
  - Gout [Not Recovered/Not Resolved]
  - Pollakiuria [Not Recovered/Not Resolved]
